FAERS Safety Report 15969889 (Version 1)
Quarter: 2019Q1

REPORT INFORMATION
  Report Type: Report from Study
  Country: US (occurrence: US)
  Receive Date: 20190215
  Receipt Date: 20190215
  Transmission Date: 20190418
  Serious: Yes (Hospitalization, Other)
  Sender: FDA-Public Use
  Company Number: US-AMAG PHARMACEUTICALS, INC.-AMAG201800963

PATIENT

DRUGS (3)
  1. MAKENA [Suspect]
     Active Substance: HYDROXYPROGESTERONE CAPROATE
     Indication: PREMATURE DELIVERY
     Dosage: 250 MG/ML, WEEKLY
     Route: 030
     Dates: start: 20180125, end: 20180125
  2. ENOXAPARIN [Concomitant]
     Active Substance: ENOXAPARIN
     Indication: COAGULATION FACTOR V LEVEL ABNORMAL
     Dosage: 40 MG, UNK
     Route: 058
     Dates: start: 2010
  3. ENOXAPARIN [Concomitant]
     Active Substance: ENOXAPARIN
     Indication: HYPERCOAGULATION

REACTIONS (3)
  - Cervical dilatation [Recovered/Resolved]
  - Labour induction [Recovered/Resolved]
  - Amniotic cavity infection [Recovered/Resolved]

NARRATIVE: CASE EVENT DATE: 20180130
